FAERS Safety Report 15950620 (Version 3)
Quarter: 2019Q1

REPORT INFORMATION
  Report Type: Report from Study
  Country: DE (occurrence: DE)
  Receive Date: 20190212
  Receipt Date: 20190218
  Transmission Date: 20190417
  Serious: Yes (Hospitalization)
  Sender: FDA-Public Use
  Company Number: DE-EISAI MEDICAL RESEARCH-EC-2019-051644

PATIENT
  Age: 81 Year
  Sex: Female
  Weight: 67 kg

DRUGS (1)
  1. HALAVEN [Suspect]
     Active Substance: ERIBULIN MESYLATE
     Indication: BREAST CANCER METASTATIC
     Route: 041
     Dates: start: 20190109

REACTIONS (1)
  - Erysipelas [Recovering/Resolving]

NARRATIVE: CASE EVENT DATE: 20190201
